FAERS Safety Report 6785241-0 (Version None)
Quarter: 2010Q2

REPORT INFORMATION
  Report Type: 
  Country: None (occurrence: None)
  Receive Date: 20100622
  Receipt Date: 20100622
  Transmission Date: 20101027
  Serious: Yes (Hospitalization)
  Sender: FDA-Public Use
  Company Number: None

PATIENT
  Age: 1 Month
  Sex: Female
  Weight: 58.9676 kg

DRUGS (2)
  1. FOSAMAX [Suspect]
     Indication: OSTEOARTHRITIS
     Dosage: 70MG 1 A WEEK PO
     Route: 048
     Dates: start: 20010101, end: 20060101
  2. ALENDRONATE -GENERIC FOXAMAX- 70MG TENU  ? [Suspect]
     Indication: OSTEOARTHRITIS
     Dosage: 70MG 1 A WEEK PO
     Route: 048
     Dates: start: 20060101, end: 20100401

REACTIONS (2)
  - ANGER [None]
  - STRESS FRACTURE [None]
